FAERS Safety Report 4572651-5 (Version None)
Quarter: 2005Q1

REPORT INFORMATION
  Report Type: 
  Country: None (occurrence: None)
  Receive Date: 20050208
  Receipt Date: 20041105
  Transmission Date: 20050727
  Serious: No
  Sender: FDA-Public Use
  Company Number: US-GLAXOSMITHKLINE-A0532862A

PATIENT
  Age: 22 Year
  Sex: Male

DRUGS (5)
  1. PAXIL [Suspect]
     Dosage: 12.5MG PER DAY
     Route: 048
     Dates: start: 20041103
  2. WELLBUTRIN XL [Concomitant]
  3. ACIPHEX [Concomitant]
  4. LOPRESSOR [Concomitant]
     Dates: end: 20041102
  5. ANTIBIOTIC [Concomitant]
     Dates: end: 20041102

REACTIONS (5)
  - AGITATION [None]
  - CHILLS [None]
  - DIARRHOEA [None]
  - NAUSEA [None]
  - SLEEP DISORDER [None]
